FAERS Safety Report 18594328 (Version 1)
Quarter: 2020Q4

REPORT INFORMATION
  Report Type: Spontaneous
  Country: LU (occurrence: LU)
  Receive Date: 20201209
  Receipt Date: 20201209
  Transmission Date: 20210114
  Serious: Yes (Other)
  Sender: FDA-Public Use
  Company Number: LU-AXELLIA-003555

PATIENT
  Age: 38 Year
  Sex: Male
  Weight: 48 kg

DRUGS (21)
  1. MIDAZOLAM B BRAUN [Suspect]
     Active Substance: MIDAZOLAM HYDROCHLORIDE
     Indication: SEDATION
     Route: 042
     Dates: start: 20201027, end: 20201106
  2. FORTECORTIN [Concomitant]
     Active Substance: DEXAMETHASONE
     Indication: COVID-19
     Route: 042
     Dates: start: 20201022, end: 20201104
  3. NEXIAM [Concomitant]
     Active Substance: ESOMEPRAZOLE
     Dosage: LONG TERM TREATMENT, ONGOING
     Route: 042
  4. CLEXANE [Concomitant]
     Active Substance: ENOXAPARIN SODIUM
     Indication: THROMBOSIS PROPHYLAXIS
     Route: 058
     Dates: start: 20201019, end: 20201022
  5. LASIX [Suspect]
     Active Substance: FUROSEMIDE
     Indication: PRODUCT USED FOR UNKNOWN INDICATION
     Route: 042
     Dates: start: 20201023, end: 20201108
  6. LYSOMUCIL [Suspect]
     Active Substance: ACETYLCYSTEINE
     Indication: PRODUCT USED FOR UNKNOWN INDICATION
     Dosage: STRENGTH:300MG
     Route: 042
     Dates: start: 20201031, end: 20201109
  7. CREON [Concomitant]
     Active Substance: PANCRELIPASE AMYLASE\PANCRELIPASE LIPASE\PANCRELIPASE PROTEASE
     Indication: PANCREATIC FAILURE
     Dosage: 1 OR 2 CAPSULES 3 TIMES PER DAY
     Route: 048
  8. ENOXAPARIN [Concomitant]
     Active Substance: ENOXAPARIN
     Indication: THROMBOSIS PROPHYLAXIS
     Route: 058
     Dates: start: 20201022
  9. VANCOMYCIN [Suspect]
     Active Substance: VANCOMYCIN
     Indication: PRODUCT USED FOR UNKNOWN INDICATION
     Route: 042
     Dates: start: 20201019, end: 20201111
  10. MOVICOL [Suspect]
     Active Substance: POLYETHYLENE GLYCOL 3350\POTASSIUM CHLORIDE\SODIUM BICARBONATE\SODIUM CHLORIDE
     Indication: PRODUCT USED FOR UNKNOWN INDICATION
     Route: 048
     Dates: start: 20201026, end: 20201109
  11. CAYSTON INHALATION [Concomitant]
     Active Substance: AZTREONAM LYSINE
     Route: 055
  12. PARACETAMOL B BRAUN [Concomitant]
     Active Substance: ACETAMINOPHEN
     Route: 042
     Dates: start: 20201019
  13. OBRACIN [Suspect]
     Active Substance: TOBRAMYCIN
     Indication: RESPIRATORY TRACT INFECTION
     Route: 042
     Dates: start: 20201030, end: 20201111
  14. LEVOPHED [Suspect]
     Active Substance: NOREPINEPHRINE BITARTRATE
     Indication: CHEMOTHERAPY CYTOKINE PROPHYLAXIS
     Route: 042
     Dates: start: 20201019, end: 20201106
  15. CIPROFLOXACINE KABI [Suspect]
     Active Substance: CIPROFLOXACIN
     Indication: PRODUCT USED FOR UNKNOWN INDICATION
     Route: 042
     Dates: start: 20201019, end: 20201111
  16. DEXDOR [Suspect]
     Active Substance: DEXMEDETOMIDINE HYDROCHLORIDE
     Indication: SEDATION
     Route: 042
     Dates: start: 20201020, end: 20201106
  17. DUOVENT [Concomitant]
     Active Substance: FENOTEROL HYDROBROMIDE
     Route: 055
     Dates: start: 20201019
  18. ACTRAPID [Concomitant]
     Active Substance: INSULIN HUMAN
     Route: 058
  19. ZITHROMAX [Concomitant]
     Active Substance: AZITHROMYCIN DIHYDRATE
     Dosage: 250 MG ON MONDAYS, WEDNESDAYS AND FRIDAYS
     Route: 048
  20. COLISTIN [Suspect]
     Active Substance: COLISTIN
     Indication: PRODUCT USED FOR UNKNOWN INDICATION
     Dosage: DOSE: 2
     Route: 055
     Dates: start: 20201104
  21. MEROPENEM KABI [Suspect]
     Active Substance: MEROPENEM
     Indication: PRODUCT USED FOR UNKNOWN INDICATION
     Route: 042
     Dates: start: 20201022, end: 20201111

REACTIONS (2)
  - Myoclonus [Not Recovered/Not Resolved]
  - Generalised tonic-clonic seizure [Recovered/Resolved]

NARRATIVE: CASE EVENT DATE: 20201107
